FAERS Safety Report 24058161 (Version 2)
Quarter: 2024Q3

REPORT INFORMATION
  Report Type: Spontaneous
  Country: US (occurrence: US)
  Receive Date: 20240708
  Receipt Date: 20240905
  Transmission Date: 20241016
  Serious: No
  Sender: NOVARTIS
  Company Number: US-002147023-NVSC2024US136746

PATIENT

DRUGS (1)
  1. CYCLOSPORINE [Suspect]
     Active Substance: CYCLOSPORINE
     Indication: Product used for unknown indication
     Dosage: UNK
     Route: 065

REACTIONS (10)
  - Eczema [Unknown]
  - Haemorrhage [Unknown]
  - Eczema weeping [Unknown]
  - Pruritus [Unknown]
  - Skin burning sensation [Unknown]
  - Rash [Unknown]
  - Skin atrophy [Unknown]
  - Skin injury [Unknown]
  - Dry skin [Unknown]
  - Therapeutic product effect delayed [Unknown]
